FAERS Safety Report 9243093 (Version 2)
Quarter: 2013Q2

REPORT INFORMATION
  Report Type: Spontaneous
  Country: IT (occurrence: IT)
  Receive Date: 20130419
  Receipt Date: 20130520
  Transmission Date: 20140414
  Serious: Yes (Life-Threatening, Hospitalization)
  Sender: FDA-Public Use
  Company Number: IT-ASTRAZENECA-2013SE24804

PATIENT
  Age: 2517 Week
  Sex: Female

DRUGS (8)
  1. SEROQUEL [Suspect]
     Indication: PSYCHOTIC DISORDER
     Route: 048
     Dates: start: 201210, end: 20130228
  2. SEROQUEL [Suspect]
     Indication: PSYCHOTIC DISORDER
     Dosage: 20 MG, 40 DF ONCE SINGLE/ADMINISTRATION
     Route: 048
     Dates: start: 20130228, end: 20130228
  3. XANAX [Suspect]
     Indication: PSYCHOTIC DISORDER
     Route: 048
     Dates: end: 20130228
  4. XANAX [Suspect]
     Indication: PSYCHOTIC DISORDER
     Dosage: 0.5 MG, 4 DF ONCE SINGLE ADMINISTRATION
     Route: 048
     Dates: start: 20130228, end: 20130228
  5. CYMBALTA [Concomitant]
     Indication: PSYCHOTIC DISORDER
     Route: 048
     Dates: start: 20130228, end: 20130228
  6. METHOTREXATE [Concomitant]
     Route: 048
     Dates: start: 20130228
  7. FOLINA [Concomitant]
     Route: 048
     Dates: start: 20130228
  8. ENBREL [Concomitant]
     Route: 058
     Dates: start: 20130228

REACTIONS (7)
  - Overdose [Recovered/Resolved]
  - Suicide attempt [Recovered/Resolved]
  - Altered state of consciousness [Recovered/Resolved]
  - Hypopnoea [Recovered/Resolved]
  - Sopor [Recovered/Resolved]
  - Drug abuse [Recovered/Resolved]
  - Intentional drug misuse [Recovered/Resolved]
